FAERS Safety Report 12045626 (Version 2)
Quarter: 2020Q1

REPORT INFORMATION
  Report Type: Report from Study
  Country: CO (occurrence: CO)
  Receive Date: 20160208
  Receipt Date: 20200114
  Transmission Date: 20200409
  Serious: Yes (Hospitalization, Other)
  Sender: FDA-Public Use
  Company Number: CO-JNJFOC-20160200768

PATIENT
  Sex: Male
  Weight: 66 kg

DRUGS (4)
  1. STELARA [Suspect]
     Active Substance: USTEKINUMAB
     Indication: PSORIASIS
     Route: 058
     Dates: start: 20120810, end: 20150819
  2. BETAMETASONE LFM [Concomitant]
     Indication: PSORIASIS
     Route: 065
  3. VASELINE                           /00473501/ [Concomitant]
     Active Substance: PARAFFIN
     Indication: PSORIASIS
     Route: 065
  4. METHOTREXATE. [Concomitant]
     Active Substance: METHOTREXATE
     Indication: PSORIASIS
     Route: 065

REACTIONS (5)
  - Urticaria [Recovered/Resolved]
  - Psoriasis [Not Recovered/Not Resolved]
  - Ischaemic stroke [Recovered/Resolved]
  - Hypoglycaemia [Recovered/Resolved]
  - Loss of consciousness [Recovered/Resolved]

NARRATIVE: CASE EVENT DATE: 2015
